FAERS Safety Report 5494006-1 (Version None)
Quarter: 2007Q4

REPORT INFORMATION
  Report Type: 
  Country: None (occurrence: None)
  Receive Date: 20071023
  Receipt Date: 20071011
  Transmission Date: 20080405
  Serious: Yes (Other)
  Sender: FDA-Public Use
  Company Number: FR-PFIZER INC-2007080606

PATIENT
  Sex: Female
  Weight: 71 kg

DRUGS (3)
  1. CHAMPIX [Suspect]
     Indication: SMOKING CESSATION THERAPY
  2. BROMAZEPAM [Concomitant]
     Indication: ANXIETY
  3. CHLORMADINONE ACETATE TAB [Concomitant]

REACTIONS (4)
  - ARTHRALGIA [None]
  - JOINT STIFFNESS [None]
  - MYALGIA [None]
  - WEIGHT INCREASED [None]
